FAERS Safety Report 9934784 (Version 5)
Quarter: 2014Q2

REPORT INFORMATION
  Report Type: Report from Study
  Country: US (occurrence: US)
  Receive Date: 20140228
  Receipt Date: 20140506
  Transmission Date: 20141212
  Serious: Yes (Life-Threatening, Hospitalization)
  Sender: FDA-Public Use
  Company Number: US-GLAXOSMITHKLINE-A1062746A

PATIENT
  Sex: Female
  Weight: 18 kg

DRUGS (10)
  1. NELARABINE [Suspect]
     Indication: LYMPHOCYTIC LEUKAEMIA
     Dosage: 650MGM2 CYCLIC
     Route: 042
     Dates: start: 20140116
  2. PEG-ASPARAGINASE [Suspect]
     Indication: LYMPHOCYTIC LEUKAEMIA
     Route: 030
  3. VINCRISTINE [Suspect]
     Indication: LYMPHOCYTIC LEUKAEMIA
     Dosage: 1.5MGM2 CYCLIC
     Route: 042
  4. DAUNORUBICIN [Suspect]
     Indication: LYMPHOCYTIC LEUKAEMIA
  5. CYTARABINE [Suspect]
     Indication: LYMPHOCYTIC LEUKAEMIA
     Dosage: 75MGM2 CYCLIC
  6. METHOTREXATE [Suspect]
     Indication: LYMPHOCYTIC LEUKAEMIA
     Route: 037
  7. PREDNISONE [Suspect]
     Indication: LYMPHOCYTIC LEUKAEMIA
  8. MERCAPTOPURINE [Suspect]
     Indication: LYMPHOCYTIC LEUKAEMIA
     Dosage: 60MGM2 CYCLIC
     Route: 048
  9. CYCLOPHOSPHAMIDE [Suspect]
     Indication: LYMPHOCYTIC LEUKAEMIA
     Dosage: 1000MGM2 CYCLIC
     Route: 042
  10. RADIATION [Concomitant]

REACTIONS (8)
  - Vocal cord paralysis [Recovering/Resolving]
  - Ascites [Recovering/Resolving]
  - Pleural effusion [Recovering/Resolving]
  - Deep vein thrombosis [Recovering/Resolving]
  - Sepsis [Recovering/Resolving]
  - Febrile neutropenia [Recovering/Resolving]
  - Platelet count decreased [Recovering/Resolving]
  - Hypokalaemia [Recovered/Resolved]
